FAERS Safety Report 4622852-2 (Version None)
Quarter: 2005Q1

REPORT INFORMATION
  Report Type: 
  Country: None (occurrence: None)
  Receive Date: 20050330
  Receipt Date: 20050223
  Transmission Date: 20050727
  Serious: Yes (Other)
  Sender: FDA-Public Use
  Company Number: JP-GLAXOSMITHKLINE-B0374047A

PATIENT
  Sex: Male

DRUGS (3)
  1. PAXIL [Suspect]
     Indication: PANIC DISORDER
  2. HANGE-KOBOKU-TO [Concomitant]
     Dosage: 6G PER DAY
     Dates: start: 20040903, end: 20050204
  3. ALPRAZOLAM [Concomitant]
     Dosage: 1U PER DAY
     Dates: end: 20050322

REACTIONS (2)
  - DRUG EXPOSURE DURING PREGNANCY [None]
  - JAUNDICE NEONATAL [None]
